FAERS Safety Report 12415902 (Version 1)
Quarter: 2016Q2

REPORT INFORMATION
  Report Type: Spontaneous
  Country: US (occurrence: US)
  Receive Date: 20160530
  Receipt Date: 20160530
  Transmission Date: 20160815
  Serious: Yes (Hospitalization)
  Sender: FDA-Public Use
  Company Number: US-INDICUS PHARMA-000418

PATIENT
  Age: 49 Year
  Sex: Male

DRUGS (8)
  1. INSULIN [Concomitant]
     Active Substance: INSULIN NOS
  2. METFORMIN [Suspect]
     Active Substance: METFORMIN HYDROCHLORIDE
     Indication: TYPE 2 DIABETES MELLITUS
     Dosage: 2500 MG IN THREE DIVIDED DOSES (INCREASED FROM 1000 MG 1 MONTH EARLIER)
  3. DIGOXIN. [Concomitant]
     Active Substance: DIGOXIN
  4. SPIRONOLACTONE. [Concomitant]
     Active Substance: SPIRONOLACTONE
  5. METOPROLOL. [Concomitant]
     Active Substance: METOPROLOL
  6. FUROSEMIDE. [Concomitant]
     Active Substance: FUROSEMIDE
     Dosage: INCREASED FROM 40 MG DAILY 1 MONTH EARLIER
  7. METOLAZONE. [Concomitant]
     Active Substance: METOLAZONE
     Dosage: ADDED 1 MONTH EARLIER
  8. WARFARIN [Concomitant]
     Active Substance: WARFARIN

REACTIONS (3)
  - Toxicity to various agents [Unknown]
  - Hyperkalaemia [Unknown]
  - Lactic acidosis [Unknown]
